FAERS Safety Report 6618840-7 (Version None)
Quarter: 2010Q1

REPORT INFORMATION
  Report Type: 
  Country: None (occurrence: None)
  Receive Date: 20100305
  Receipt Date: 20100305
  Transmission Date: 20100710
  Serious: Yes (Hospitalization)
  Sender: FDA-Public Use
  Company Number: None

PATIENT
  Sex: Female
  Weight: 72.5755 kg

DRUGS (10)
  1. BYETTA [Suspect]
     Indication: TYPE 2 DIABETES MELLITUS
     Dosage: 5 MCG BID SQ
     Route: 058
     Dates: start: 20091029, end: 20100127
  2. METFORMIN [Concomitant]
  3. GLYBURIDE [Concomitant]
  4. HYDROCHLOROTHIAZIDE [Concomitant]
  5. LISINOPRIL [Concomitant]
  6. NIACIN [Concomitant]
  7. PROPRANOLOL HYDROCHLORIDE [Concomitant]
  8. SIMVASTATIN [Concomitant]
  9. ASPIRIN [Concomitant]
  10. CIPROFLOXACIN [Concomitant]

REACTIONS (5)
  - BLOOD AMYLASE INCREASED [None]
  - LIPASE INCREASED [None]
  - MALAISE [None]
  - RENAL FAILURE ACUTE [None]
  - RENAL TUBULAR NECROSIS [None]
